FAERS Safety Report 7978477-4 (Version None)
Quarter: 2011Q4

REPORT INFORMATION
  Report Type: 
  Country: None (occurrence: None)
  Receive Date: 20111214
  Receipt Date: 20111122
  Transmission Date: 20120403
  Serious: No
  Sender: FDA-Public Use
  Company Number: US-BAYER-2011-113051

PATIENT
  Sex: Female

DRUGS (2)
  1. BEYAZ [Suspect]
  2. YAZ [Concomitant]

REACTIONS (1)
  - ABDOMINAL PAIN UPPER [None]
